FAERS Safety Report 15996275 (Version 8)
Quarter: 2020Q2

REPORT INFORMATION
  Report Type: Report from Study
  Country: US (occurrence: US)
  Receive Date: 20190222
  Receipt Date: 20200428
  Transmission Date: 20200713
  Serious: Yes (Hospitalization, Other)
  Sender: FDA-Public Use
  Company Number: US-ACTELION-A-NJ2019-186453

PATIENT
  Age: 35 Year
  Sex: Female
  Weight: 36.28 kg

DRUGS (4)
  1. OPSUMIT [Suspect]
     Active Substance: MACITENTAN
     Indication: PULMONARY HYPERTENSION
     Dosage: 10 MG, QD
     Route: 048
  2. ADEMPAS [Concomitant]
     Active Substance: RIOCIGUAT
  3. ELIQUIS [Concomitant]
     Active Substance: APIXABAN
  4. MIDODRINE [Concomitant]
     Active Substance: MIDODRINE

REACTIONS (7)
  - Hospitalisation [Unknown]
  - Headache [Unknown]
  - Dizziness [Unknown]
  - Thrombosis [Unknown]
  - Hypertonic bladder [Unknown]
  - Wound [Unknown]
  - Hypotension [Unknown]

NARRATIVE: CASE EVENT DATE: 20190220
